FAERS Safety Report 10260797 (Version 1)
Quarter: 2014Q2

REPORT INFORMATION
  Report Type: Spontaneous
  Country: US (occurrence: US)
  Receive Date: 20140626
  Receipt Date: 20140626
  Transmission Date: 20141212
  Serious: No
  Sender: FDA-Public Use
  Company Number: US-009507513-1406USA008559

PATIENT
  Sex: Female

DRUGS (1)
  1. RAGWITEK [Suspect]
     Indication: HYPERSENSITIVITY
     Dosage: 12 AMB A 1-UNIT/1 SINGLE TABLET
     Route: 060

REACTIONS (2)
  - Chest discomfort [Recovered/Resolved]
  - Dyspnoea [Recovered/Resolved]
